FAERS Safety Report 5491581-8 (Version None)
Quarter: 2007Q4

REPORT INFORMATION
  Report Type: 
  Country: None (occurrence: None)
  Receive Date: 20071018
  Receipt Date: 20071018
  Transmission Date: 20080405
  Serious: Yes (Life-Threatening)
  Sender: FDA-Public Use
  Company Number: None

PATIENT
  Age: 69 Year
  Sex: Male

DRUGS (13)
  1. VERSED [Suspect]
     Indication: SEDATION
     Dosage: 4 MG IV X 1
     Route: 042
     Dates: start: 20070710
  2. FENTANYL [Suspect]
     Indication: SEDATION
     Dosage: 200 MCG IV X 1
     Route: 042
     Dates: start: 20070710
  3. ATENOLOL [Concomitant]
  4. LANSOPRAZOLE [Concomitant]
  5. FUROSEMIDE [Concomitant]
  6. LOSARTAN POTASSIUM [Concomitant]
  7. ADVAIR DISKUS 100/50 [Concomitant]
  8. SPIRIVA [Concomitant]
  9. ONDANSETRON [Concomitant]
  10. POTASSIUM PHOSPHATES [Concomitant]
  11. CEFEPIME [Concomitant]
  12. METRONIDAZOLE [Concomitant]
  13. VORICONAZOLE [Concomitant]

REACTIONS (6)
  - ATRIAL FIBRILLATION [None]
  - CARDIO-RESPIRATORY ARREST [None]
  - ELECTROMECHANICAL DISSOCIATION [None]
  - HYPERTENSION [None]
  - PROCEDURAL HYPERTENSION [None]
  - RESPIRATORY FAILURE [None]
